FAERS Safety Report 9198057 (Version 1)
Quarter: 2013Q1

REPORT INFORMATION
  Report Type: Spontaneous
  Country: US (occurrence: US)
  Receive Date: 20130328
  Receipt Date: 20130328
  Transmission Date: 20140127
  Serious: Yes (Other)
  Sender: FDA-Public Use
  Company Number: US-B.I. PHARMACEUTICALS,INC./RIDGEFIELD-2013-BI-07831GD

PATIENT
  Age: 46 Year
  Sex: Female

DRUGS (8)
  1. IPRATROPIUMBROMID [Suspect]
  2. PANTOPRAZOLE [Suspect]
  3. BENZOCAINE [Suspect]
     Dosage: FORMULATION: SPRAY
  4. VANCOMYCIN [Suspect]
  5. PIPERACILLIN/TAZOBACTAM [Suspect]
  6. ALBUTEROL [Suspect]
  7. HYDROMORPHONE [Suspect]
  8. KETOROLAC [Suspect]

REACTIONS (4)
  - Methaemoglobinaemia [Recovered/Resolved]
  - Renal tubular necrosis [Recovered/Resolved]
  - Renal injury [Recovered/Resolved]
  - Cyanosis [Unknown]
